FAERS Safety Report 14235808 (Version 14)
Quarter: 2018Q2

REPORT INFORMATION
  Report Type: Report from Study
  Country: CA (occurrence: CA)
  Receive Date: 20171129
  Receipt Date: 20180626
  Transmission Date: 20180711
  Serious: Yes (Hospitalization, Other)
  Sender: FDA-Public Use
  Company Number: CA-GLAXOSMITHKLINE-CA2017GSK180813

PATIENT
  Age: 85 Year
  Sex: Female
  Weight: 60 kg

DRUGS (5)
  1. MEPOLIZUMAB [Suspect]
     Active Substance: MEPOLIZUMAB
     Dosage: 100 MG, Z, MONTHLY
     Route: 042
  2. MEPOLIZUMAB [Suspect]
     Active Substance: MEPOLIZUMAB
     Dosage: 100 MG, Z, MONTHLY
     Route: 042
  3. MEPOLIZUMAB [Suspect]
     Active Substance: MEPOLIZUMAB
     Dosage: 100 MG, Z, MONTHLY
     Route: 042
  4. MIRAPEX [Suspect]
     Active Substance: PRAMIPEXOLE DIHYDROCHLORIDE
     Indication: PRODUCT USED FOR UNKNOWN INDICATION
     Dosage: UNK
  5. MEPOLIZUMAB [Suspect]
     Active Substance: MEPOLIZUMAB
     Indication: ASTHMA
     Dosage: 100 MG, Z(MONTHLY)
     Route: 042

REACTIONS (24)
  - Nasal discharge discolouration [Unknown]
  - Fall [Unknown]
  - Fatigue [Unknown]
  - Sleep disorder due to a general medical condition [Unknown]
  - Oedema peripheral [Unknown]
  - Decreased appetite [Unknown]
  - Staphylococcal infection [Recovering/Resolving]
  - Sputum discoloured [Unknown]
  - Weight decreased [Unknown]
  - Restless legs syndrome [Unknown]
  - Insomnia [Unknown]
  - Dyspnoea [Not Recovered/Not Resolved]
  - Increased upper airway secretion [Unknown]
  - Herpes zoster [Unknown]
  - Rib fracture [Unknown]
  - Therapy cessation [Unknown]
  - Pneumonia influenzal [Recovering/Resolving]
  - Pruritus generalised [Not Recovered/Not Resolved]
  - Laceration [Unknown]
  - Nausea [Unknown]
  - Wound [Unknown]
  - Drug dose omission [Unknown]
  - Bacterial infection [Unknown]
  - Rash [Not Recovered/Not Resolved]

NARRATIVE: CASE EVENT DATE: 20180305
